FAERS Safety Report 16758841 (Version 1)
Quarter: 2019Q3

REPORT INFORMATION
  Report Type: Spontaneous
  Country: FR (occurrence: FR)
  Receive Date: 20190830
  Receipt Date: 20190830
  Transmission Date: 20191005
  Serious: Yes (Other)
  Sender: FDA-Public Use
  Company Number: FR-ACCORD-153229

PATIENT
  Age: 68 Year
  Sex: Male

DRUGS (5)
  1. TICAGRELOR. [Suspect]
     Active Substance: TICAGRELOR
     Indication: MYOCARDIAL INFARCTION
     Route: 048
  2. TICAGRELOR. [Suspect]
     Active Substance: TICAGRELOR
     Indication: MYOCARDIAL INFARCTION
     Route: 048
  3. EPLERENONE. [Concomitant]
     Active Substance: EPLERENONE
     Route: 065
  4. PRASUGREL. [Suspect]
     Active Substance: PRASUGREL
     Indication: ACUTE CORONARY SYNDROME
     Route: 065
  5. ACETYLSALICYLIC ACID [Concomitant]
     Active Substance: ASPIRIN
     Route: 065

REACTIONS (1)
  - Sleep apnoea syndrome [Recovered/Resolved]
